FAERS Safety Report 23804477 (Version 2)
Quarter: 2024Q2

REPORT INFORMATION
  Report Type: Report from Study
  Country: US (occurrence: US)
  Receive Date: 20240501
  Receipt Date: 20240609
  Transmission Date: 20240716
  Serious: No
  Sender: FDA-Public Use
  Company Number: US-AstraZeneca-CH-00613003A

PATIENT
  Age: 55 Year
  Sex: Female

DRUGS (1)
  1. STRENSIQ [Suspect]
     Active Substance: ASFOTASE ALFA
     Indication: Product used for unknown indication
     Dosage: UNK
     Route: 065

REACTIONS (10)
  - Burning sensation [Unknown]
  - Pruritus [Unknown]
  - Choking sensation [Unknown]
  - Uterine cyst [Unknown]
  - Mass [Unknown]
  - Weight increased [Unknown]
  - Urinary tract infection [Unknown]
  - Product dose omission issue [Unknown]
  - Erythema [Unknown]
  - Feeling abnormal [Not Recovered/Not Resolved]

NARRATIVE: CASE EVENT DATE: 20230101
